FAERS Safety Report 8181538-0 (Version None)
Quarter: 2012Q1

REPORT INFORMATION
  Report Type: 
  Country: None (occurrence: None)
  Receive Date: 20120302
  Receipt Date: 20120224
  Transmission Date: 20120608
  Serious: Yes (Other)
  Sender: FDA-Public Use
  Company Number: US-FRI-1000028671

PATIENT
  Sex: Female
  Weight: 79.3 kg

DRUGS (2)
  1. TEFLARO [Suspect]
     Indication: STAPHYLOCOCCAL INFECTION
     Dosage: 1200 MG
     Route: 042
     Dates: start: 20111105, end: 20111109
  2. GLYBURIDE [Concomitant]
     Indication: DIABETES MELLITUS
     Dosage: 20 MG

REACTIONS (1)
  - BLOOD GLUCOSE FLUCTUATION [None]
